FAERS Safety Report 24812786 (Version 1)
Quarter: 2025Q1

REPORT INFORMATION
  Report Type: Spontaneous
  Country: DE (occurrence: DE)
  Receive Date: 20250107
  Receipt Date: 20250107
  Transmission Date: 20250408
  Serious: Yes (Hospitalization)
  Sender: VIWIT PHARMACEUTICAL
  Company Number: DE-VIWITPHARMA-2025VWTLIT00001

PATIENT
  Age: 8 Year
  Sex: Female
  Weight: 29 kg

DRUGS (4)
  1. LEVETIRACETAM [Suspect]
     Active Substance: LEVETIRACETAM
     Indication: Generalised tonic-clonic seizure
     Dates: start: 2022
  2. LEVETIRACETAM [Suspect]
     Active Substance: LEVETIRACETAM
     Dates: start: 2022
  3. LEVETIRACETAM [Suspect]
     Active Substance: LEVETIRACETAM
     Dates: start: 2024
  4. MIDAZOLAM [Concomitant]
     Active Substance: MIDAZOLAM
     Indication: Product used for unknown indication

REACTIONS (2)
  - Electroencephalogram abnormal [Recovered/Resolved]
  - Drug ineffective [Unknown]
